FAERS Safety Report 8490291-2 (Version None)
Quarter: 2012Q3

REPORT INFORMATION
  Report Type: 
  Country: None (occurrence: None)
  Receive Date: 20120705
  Receipt Date: 20120516
  Transmission Date: 20120928
  Serious: No
  Sender: FDA-Public Use
  Company Number: US-BAUSCH-2012BL003202

PATIENT
  Age: 84 Year
  Sex: Female

DRUGS (4)
  1. OPCON-A [Suspect]
     Indication: DRY EYE
     Route: 047
     Dates: start: 20120502, end: 20120502
  2. PROPYLENE GLYCOL [Concomitant]
     Indication: DRY EYE
     Route: 047
  3. OPCON-A [Suspect]
     Indication: HYPERSENSITIVITY
     Route: 047
     Dates: start: 20120502, end: 20120502
  4. OPCON-A [Suspect]
     Indication: EYE PRURITUS
     Route: 047
     Dates: start: 20120502, end: 20120502

REACTIONS (2)
  - EYE IRRITATION [None]
  - EYE PAIN [None]
